FAERS Safety Report 18266921 (Version 1)
Quarter: 2020Q3

REPORT INFORMATION
  Report Type: Spontaneous
  Country: US (occurrence: US)
  Receive Date: 20200914
  Receipt Date: 20200914
  Transmission Date: 20201103
  Serious: Yes (Other)
  Sender: FDA-Public Use
  Company Number: None

PATIENT
  Sex: Female

DRUGS (7)
  1. TUMERIC CUR [Concomitant]
  2. REBIF [Suspect]
     Active Substance: INTERFERON BETA-1A
     Indication: MULTIPLE SCLEROSIS
     Dosage: ?          OTHER FREQUENCY:TIW;?
     Route: 058
     Dates: start: 20140119
  3. ATENOLOL. [Concomitant]
     Active Substance: ATENOLOL
  4. MAGNESIUM [Concomitant]
     Active Substance: MAGNESIUM
  5. ADVIL [Concomitant]
     Active Substance: IBUPROFEN
  6. CALCIUM [Concomitant]
     Active Substance: CALCIUM
  7. MULTIVITAMIN TAB [Concomitant]

REACTIONS (1)
  - Breast cancer [None]
